FAERS Safety Report 7427282-6 (Version None)
Quarter: 2011Q2

REPORT INFORMATION
  Report Type: 
  Country: None (occurrence: None)
  Receive Date: 20110420
  Receipt Date: 20110324
  Transmission Date: 20111010
  Serious: No
  Sender: FDA-Public Use
  Company Number: US-MYLANLABS-2011S1006345

PATIENT
  Age: 66 Year
  Sex: Male
  Weight: 79.38 kg

DRUGS (5)
  1. TAMSULOSIN HCL [Suspect]
     Route: 048
     Dates: end: 20101001
  2. ASMANEX TWISTHALER [Concomitant]
     Indication: ASTHMA
     Route: 055
  3. MUCINEX D [Concomitant]
     Indication: NASAL CONGESTION
     Route: 048
  4. TAMSULOSIN HCL [Suspect]
     Indication: BENIGN PROSTATIC HYPERPLASIA
     Route: 048
     Dates: start: 20100301, end: 20100701
  5. TAMSULOSIN HCL [Suspect]
     Route: 048
     Dates: start: 20100701

REACTIONS (3)
  - DIZZINESS [None]
  - DRUG INEFFECTIVE [None]
  - BENIGN PROSTATIC HYPERPLASIA [None]
